FAERS Safety Report 5404300-8 (Version None)
Quarter: 2007Q3

REPORT INFORMATION
  Report Type: 
  Country: None (occurrence: None)
  Receive Date: 20070802
  Receipt Date: 20070723
  Transmission Date: 20080115
  Serious: Yes (Life-Threatening, Other)
  Sender: FDA-Public Use
  Company Number: HQWYE876108MAR05

PATIENT
  Age: 61 Year
  Sex: Female
  Weight: 64 kg

DRUGS (8)
  1. EFFEXOR [Suspect]
     Indication: DEPRESSION
     Route: 048
     Dates: start: 20021001
  2. EUTHYROX [Concomitant]
     Dosage: ALTERNATING 37.5 OR 62.5 UG PER DAY
     Route: 048
  3. SEROQUEL [Concomitant]
     Indication: DEPRESSION
     Route: 048
     Dates: start: 20041101
  4. SEROQUEL [Concomitant]
     Indication: ANXIETY
  5. SEROQUEL [Concomitant]
     Indication: AGITATION
  6. LITHIUM CARBONATE [Suspect]
     Indication: DEPRESSION
     Dosage: 12 + 6 MMOL PER DAY
     Route: 048
     Dates: start: 20030201, end: 20050302
  7. NEBILET [Concomitant]
     Route: 048
  8. ESTRACOMB [Concomitant]
     Dosage: UNKNOWN
     Route: 062

REACTIONS (7)
  - COORDINATION ABNORMAL [None]
  - ELECTROENCEPHALOGRAM ABNORMAL [None]
  - ENCEPHALOPATHY [None]
  - GAIT DISTURBANCE [None]
  - MUSCLE TWITCHING [None]
  - SOMNOLENCE [None]
  - TREMOR [None]
